FAERS Safety Report 10169466 (Version 1)
Quarter: 2014Q2

REPORT INFORMATION
  Report Type: Spontaneous
  Country: US (occurrence: US)
  Receive Date: 20140513
  Receipt Date: 20140513
  Transmission Date: 20141212
  Serious: No
  Sender: FDA-Public Use
  Company Number: US-TEVA-480793USA

PATIENT
  Age: 33 Year
  Sex: Female

DRUGS (2)
  1. NUVIGIL [Suspect]
     Route: 048
  2. ZOCOR [Concomitant]

REACTIONS (1)
  - Rash generalised [Recovering/Resolving]
